FAERS Safety Report 4922752-4 (Version None)
Quarter: 2006Q1

REPORT INFORMATION
  Report Type: 
  Country: None (occurrence: None)
  Receive Date: 20060224
  Receipt Date: 20051013
  Transmission Date: 20060701
  Serious: Yes (Hospitalization, Other)
  Sender: FDA-Public Use
  Company Number: PR-MERCK-0510USA07429

PATIENT
  Age: 62 Year
  Sex: Female
  Weight: 65 kg

DRUGS (6)
  1. VIOXX [Suspect]
     Indication: ARTHRALGIA
     Route: 048
     Dates: start: 20020301, end: 20040830
  2. ASPIRIN [Concomitant]
     Route: 065
  3. LIPITOR [Concomitant]
     Indication: BLOOD CHOLESTEROL
     Route: 065
     Dates: start: 20010112
  4. CRESTOR [Concomitant]
     Indication: BLOOD CHOLESTEROL
     Route: 065
     Dates: start: 20010101, end: 20050101
  5. BEXTRA [Concomitant]
     Indication: PAIN
     Route: 065
     Dates: start: 20010101, end: 20050101
  6. CELEBREX [Concomitant]
     Indication: ANALGESIC EFFECT
     Route: 065

REACTIONS (9)
  - ABDOMINAL PAIN UPPER [None]
  - ANOREXIA [None]
  - CEREBROVASCULAR ACCIDENT [None]
  - CONVULSION [None]
  - DIABETES MELLITUS [None]
  - HEADACHE [None]
  - LOSS OF CONSCIOUSNESS [None]
  - OVERDOSE [None]
  - PAIN [None]
